FAERS Safety Report 6238701-5 (Version None)
Quarter: 2009Q2

REPORT INFORMATION
  Report Type: 
  Country: None (occurrence: None)
  Receive Date: 20090622
  Receipt Date: 20090610
  Transmission Date: 20091009
  Serious: Yes (Disabling)
  Sender: FDA-Public Use
  Company Number: GB-PFIZER INC-2009225108

PATIENT
  Age: 45 Year

DRUGS (5)
  1. LYRICA [Suspect]
     Indication: PAIN
     Dosage: 300 MG, 2X/DAY
     Route: 048
     Dates: start: 20090401
  2. AMITRIPTYLINE [Concomitant]
     Indication: COMPLEX REGIONAL PAIN SYNDROME
     Dosage: 150 MG, 1X/DAY
     Route: 048
  3. CELEBREX [Concomitant]
     Indication: COMPLEX REGIONAL PAIN SYNDROME
     Dosage: 200 MG, 2X/DAY
     Route: 048
     Dates: end: 20090520
  4. OMEPRAZOLE [Concomitant]
     Indication: COMPLEX REGIONAL PAIN SYNDROME
     Dosage: 20 MG, 2X/DAY
     Route: 048
  5. OXYCODONE [Concomitant]
     Indication: COMPLEX REGIONAL PAIN SYNDROME
     Dosage: 50 MG, 2X/DAY
     Route: 048
     Dates: start: 20090401

REACTIONS (1)
  - TUNNEL VISION [None]
